FAERS Safety Report 7062163-1 (Version None)
Quarter: 2010Q4

REPORT INFORMATION
  Report Type: 
  Country: None (occurrence: None)
  Receive Date: 20101026
  Receipt Date: 20101019
  Transmission Date: 20110411
  Serious: Yes (Hospitalization)
  Sender: FDA-Public Use
  Company Number: PHHO2010US16072

PATIENT
  Sex: Male
  Weight: 75.1 kg

DRUGS (8)
  1. AFINITOR [Suspect]
     Indication: NEOPLASM
     Dosage: 5 MG
     Route: 048
     Dates: start: 20100504, end: 20101017
  2. AVASTIN [Suspect]
     Indication: NEOPLASM
     Dosage: 7.5 MG/KG
     Route: 042
     Dates: start: 20100504
  3. OXALIPLATIN COMP-OXA+ [Suspect]
     Indication: NEOPLASM
     Dosage: 75 MG/M2
     Route: 042
     Dates: start: 20100504, end: 20100615
  4. CAPECITABINE COMP-CAP+TAB [Suspect]
     Indication: NEOPLASM
     Dosage: 1000 MG, BID
     Route: 048
     Dates: start: 20100504, end: 20101012
  5. ATENOLOL [Concomitant]
  6. LIPITOR [Concomitant]
  7. POTASSIUM CHLORIDE [Concomitant]
  8. ASCORBIC ACID [Concomitant]

REACTIONS (3)
  - DEEP VEIN THROMBOSIS [None]
  - HYPOAESTHESIA [None]
  - SKIN DISCOLOURATION [None]
